FAERS Safety Report 15491209 (Version 2)
Quarter: 2018Q4

REPORT INFORMATION
  Report Type: Spontaneous
  Country: AU (occurrence: AU)
  Receive Date: 20181012
  Receipt Date: 20181016
  Transmission Date: 20190205
  Serious: No
  Sender: FDA-Public Use
  Company Number: AU-009507513-1810AUS002056

PATIENT
  Sex: Male

DRUGS (1)
  1. SINEMET CR [Suspect]
     Active Substance: CARBIDOPA\LEVODOPA
     Indication: PARKINSONISM
     Dosage: 7.5 (UNITS NOT SPECIFIED) TABLETS PER DAY
     Route: 048

REACTIONS (1)
  - Incorrect dose administered [Unknown]
